FAERS Safety Report 17338711 (Version 1)
Quarter: 2020Q1

REPORT INFORMATION
  Report Type: Spontaneous
  Country: JP (occurrence: JP)
  Receive Date: 20200129
  Receipt Date: 20200129
  Transmission Date: 20200409
  Serious: Yes (Death, Hospitalization, Other)
  Sender: FDA-Public Use
  Company Number: JP-MYLANLABS-2020M1010652

PATIENT
  Age: 84 Year
  Sex: Female

DRUGS (7)
  1. PREDNISOLONE. [Suspect]
     Active Substance: PREDNISOLONE
     Indication: HAEMOLYTIC ANAEMIA
     Dosage: 40 MILLIGRAM, QD
     Route: 065
  2. VANCOMYCIN [Suspect]
     Active Substance: VANCOMYCIN
     Indication: ANTIBIOTIC THERAPY
     Dosage: 500MG TO 1G AT A TIME
     Route: 065
  3. ACICLOVIR [Suspect]
     Active Substance: ACYCLOVIR
     Indication: ANTIBIOTIC THERAPY
     Dosage: 500 MILLIGRAM
     Route: 042
  4. VALACICLOVIR [Suspect]
     Active Substance: VALACYCLOVIR HYDROCHLORIDE
     Indication: ANTIBIOTIC THERAPY
     Dosage: 1 GRAM, QD
     Route: 065
  5. AMPICILLIN AND SULBACTAM [Suspect]
     Active Substance: AMPICILLIN SODIUM\SULBACTAM SODIUM
     Indication: ANTIBIOTIC THERAPY
     Dosage: 3 GRAM
     Route: 065
  6. CEFMETAZOLE [Suspect]
     Active Substance: CEFMETAZOLE
     Indication: ANTIBIOTIC THERAPY
     Dosage: 2 GRAM
     Route: 065
  7. COTRIMOXAZOLE [Suspect]
     Active Substance: SULFAMETHOXAZOLE\TRIMETHOPRIM
     Indication: ANTIBIOTIC THERAPY
     Dosage: 7.5 MILLIGRAM/KILOGRAM, QD
     Route: 065

REACTIONS (8)
  - Herpes zoster [Fatal]
  - Varicella zoster pneumonia [Fatal]
  - Acute respiratory failure [Fatal]
  - Drug ineffective [Unknown]
  - Mental status changes [Fatal]
  - Coma [Fatal]
  - Pneumocystis jirovecii pneumonia [Fatal]
  - Renal impairment [Fatal]
